FAERS Safety Report 4541153-4 (Version None)
Quarter: 2004Q4

REPORT INFORMATION
  Report Type: 
  Country: None (occurrence: None)
  Receive Date: 20041227
  Receipt Date: 20041221
  Transmission Date: 20050328
  Serious: Yes (Hospitalization, Other)
  Sender: FDA-Public Use
  Company Number: HQWYE131321DEC04

PATIENT
  Age: 63 Year
  Sex: Male

DRUGS (4)
  1. AVLOCARDY     (PROPANOLOL HYDROCHLORIDE) [Suspect]
     Indication: PROPHYLAXIS
     Dosage: 40 MG 2X PER 1 DAY, ORAL
     Route: 048
     Dates: start: 20030210, end: 20030211
  2. AVLOCARDY     (PROPANOLOL HYDROCHLORIDE) [Suspect]
     Indication: VARICES OESOPHAGEAL
     Dosage: 40 MG 2X PER 1 DAY, ORAL
     Route: 048
     Dates: start: 20030210, end: 20030211
  3. LASILIX (FUROSEMIDE) [Concomitant]
  4. ALDACTONE [Concomitant]

REACTIONS (6)
  - ASPARTATE AMINOTRANSFERASE INCREASED [None]
  - ATRIOVENTRICULAR BLOCK SECOND DEGREE [None]
  - BLOOD ALKALINE PHOSPHATASE INCREASED [None]
  - BLOOD BILIRUBIN INCREASED [None]
  - BRADYCARDIA [None]
  - GAMMA-GLUTAMYLTRANSFERASE INCREASED [None]
